FAERS Safety Report 7744573-X (Version None)
Quarter: 2011Q3

REPORT INFORMATION
  Report Type: 
  Country: None (occurrence: None)
  Receive Date: 20110912
  Receipt Date: 20110906
  Transmission Date: 20111222
  Serious: Yes (Other)
  Sender: FDA-Public Use
  Company Number: US-PFIZER INC-2011209207

PATIENT
  Sex: Female

DRUGS (2)
  1. ADDERALL 5 [Concomitant]
     Dosage: UNK
  2. TOVIAZ [Suspect]
     Indication: URINARY INCONTINENCE
     Dosage: 8 MG, 1X/DAY
     Route: 048

REACTIONS (1)
  - OEDEMA [None]
